FAERS Safety Report 25194350 (Version 1)
Quarter: 2025Q2

REPORT INFORMATION
  Report Type: Report from Study
  Country: US (occurrence: US)
  Receive Date: 20250414
  Receipt Date: 20250414
  Transmission Date: 20250717
  Serious: Yes (Hospitalization, Other)
  Sender: ABBVIE
  Company Number: US-ABBVIE-6227278

PATIENT
  Age: 52 Year
  Sex: Male

DRUGS (2)
  1. VYALEV [Suspect]
     Active Substance: FOSCARBIDOPA\FOSLEVODOPA
     Indication: Parkinson^s disease
     Route: 058
     Dates: start: 20250328
  2. VYALEV [Suspect]
     Active Substance: FOSCARBIDOPA\FOSLEVODOPA
     Route: 058
     Dates: start: 202504

REACTIONS (5)
  - Seizure [Not Recovered/Not Resolved]
  - Hypotension [Not Recovered/Not Resolved]
  - Paranoia [Unknown]
  - Confusional state [Unknown]
  - Anal incontinence [Unknown]

NARRATIVE: CASE EVENT DATE: 20250101
